FAERS Safety Report 5336363-2 (Version None)
Quarter: 2007Q2

REPORT INFORMATION
  Report Type: 
  Country: None (occurrence: None)
  Receive Date: 20070529
  Receipt Date: 20070521
  Transmission Date: 20071010
  Serious: Yes (Hospitalization)
  Sender: FDA-Public Use
  Company Number: DEWYE114321MAR07

PATIENT
  Sex: Female

DRUGS (1)
  1. TREVILOR [Suspect]
     Dosage: SINGLE DOSE 37.5 MG
     Dates: start: 20070323, end: 20070323

REACTIONS (7)
  - ANXIETY [None]
  - BLOOD PRESSURE INCREASED [None]
  - ELECTROCARDIOGRAM ST SEGMENT DEPRESSION [None]
  - MUSCLE SPASMS [None]
  - PERIPHERAL VASCULAR DISORDER [None]
  - RASH MACULAR [None]
  - TREMOR [None]
